FAERS Safety Report 11850406 (Version 2)
Quarter: 2017Q1

REPORT INFORMATION
  Report Type: Spontaneous
  Country: FR (occurrence: FR)
  Receive Date: 20151218
  Receipt Date: 20170110
  Transmission Date: 20170428
  Serious: Yes (Hospitalization)
  Sender: FDA-Public Use
  Company Number: FR-FRI-1000081668

PATIENT
  Age: 87 Year
  Sex: Female

DRUGS (11)
  1. LEVOTHYROX [Concomitant]
     Active Substance: LEVOTHYROXINE
     Indication: PRODUCT USED FOR UNKNOWN INDICATION
     Dosage: 50 ?G, QD
     Route: 065
  2. PLAVIX [Interacting]
     Active Substance: CLOPIDOGREL BISULFATE
     Indication: ENDARTERECTOMY
     Dosage: 75 MG, QD
     Route: 048
     Dates: start: 2008
  3. THERALENE [Concomitant]
     Active Substance: TRIMEPRAZINE
     Indication: PRODUCT USED FOR UNKNOWN INDICATION
     Dosage: 5 MG, QD
     Route: 065
  4. STRESAM [Concomitant]
     Active Substance: ETIFOXINE
     Indication: PRODUCT USED FOR UNKNOWN INDICATION
     Dosage: 1 DF, BID
     Route: 065
  5. LYRICA [Concomitant]
     Active Substance: PREGABALIN
     Indication: PRODUCT USED FOR UNKNOWN INDICATION
     Dosage: 25 MG, TID
     Route: 065
  6. ZYPREXA [Concomitant]
     Active Substance: OLANZAPINE
     Indication: PRODUCT USED FOR UNKNOWN INDICATION
     Dosage: 5 MG, QD
     Route: 065
  7. ATORVASTATIN [Concomitant]
     Active Substance: ATORVASTATIN
     Indication: PRODUCT USED FOR UNKNOWN INDICATION
     Dosage: 50 MG, BID
     Route: 065
  8. ZYMAD [Concomitant]
     Active Substance: CHOLECALCIFEROL
     Indication: PRODUCT USED FOR UNKNOWN INDICATION
     Dosage: 80000 IU, Q MONTH
     Route: 048
  9. ESCITALOPRAM OXALATE UNK [Suspect]
     Active Substance: ESCITALOPRAM OXALATE
     Indication: DEPRESSION
     Dosage: 5 MG, QD
     Route: 048
  10. DAFALGAN [Concomitant]
     Active Substance: ACETAMINOPHEN
     Indication: PRODUCT USED FOR UNKNOWN INDICATION
     Dosage: 500 MG, BID
     Route: 065
  11. ATACAND [Concomitant]
     Active Substance: CANDESARTAN CILEXETIL
     Indication: PRODUCT USED FOR UNKNOWN INDICATION
     Dosage: 8 MG, QD
     Route: 065

REACTIONS (2)
  - Drug interaction [Recovered/Resolved]
  - Haemarthrosis [Recovered/Resolved]

NARRATIVE: CASE EVENT DATE: 20151012
